FAERS Safety Report 19062763 (Version 2)
Quarter: 2023Q2

REPORT INFORMATION
  Report Type: Spontaneous
  Country: US (occurrence: US)
  Receive Date: 20210326
  Receipt Date: 20230511
  Transmission Date: 20230721
  Serious: Yes (Hospitalization, Other)
  Sender: FDA-Public Use
  Company Number: US-ASTELLAS-2021US010600

PATIENT
  Age: 9 Month
  Sex: Female

DRUGS (12)
  1. TACROLIMUS [Interacting]
     Active Substance: TACROLIMUS
     Indication: Prophylaxis against graft versus host disease
     Route: 048
  2. TACROLIMUS [Interacting]
     Active Substance: TACROLIMUS
     Route: 048
     Dates: start: 2020, end: 2020
  3. TACROLIMUS [Interacting]
     Active Substance: TACROLIMUS
     Route: 048
  4. TACROLIMUS [Interacting]
     Active Substance: TACROLIMUS
     Route: 048
     Dates: start: 2020, end: 2020
  5. VORICONAZOLE [Interacting]
     Active Substance: VORICONAZOLE
     Indication: Pyrexia
     Dosage: UNK UNK, UNKNOWN FREQ.
     Route: 065
  6. VORICONAZOLE [Interacting]
     Active Substance: VORICONAZOLE
     Indication: Pulmonary mass
  7. FOSPHENYTOIN [Interacting]
     Active Substance: FOSPHENYTOIN
     Indication: Immunosuppressant drug level increased
     Dosage: UNK UNK, UNKNOWN FREQ.
     Route: 065
  8. FLUDARABINE [Concomitant]
     Active Substance: FLUDARABINE PHOSPHATE
     Indication: Bone marrow transplant
     Dosage: UNK UNK, UNKNOWN FREQ.
     Route: 065
  9. MELPHALAN [Concomitant]
     Active Substance: MELPHALAN
     Indication: Bone marrow transplant
     Dosage: UNK UNK, UNKNOWN FREQ.
     Route: 065
  10. CAMPATH [Concomitant]
     Active Substance: ALEMTUZUMAB
     Indication: Bone marrow transplant
     Dosage: UNK UNK, UNKNOWN FREQ.
     Route: 065
  11. CYCLOPHOSPHAMIDE [Concomitant]
     Active Substance: CYCLOPHOSPHAMIDE
     Indication: Prophylaxis against graft versus host disease
     Dosage: UNK UNK, UNKNOWN FREQ.
     Route: 065
  12. MYCOPHENOLATE MOFETIL [Concomitant]
     Active Substance: MYCOPHENOLATE MOFETIL
     Indication: Prophylaxis against graft versus host disease
     Dosage: UNK UNK, UNKNOWN FREQ.
     Route: 065

REACTIONS (7)
  - Pulmonary mass [Unknown]
  - Pyrexia [Unknown]
  - Septic shock [Unknown]
  - Drug interaction [Unknown]
  - Drug interaction [Unknown]
  - Toxicity to various agents [Unknown]
  - Off label use [Unknown]

NARRATIVE: CASE EVENT DATE: 20200101
